FAERS Safety Report 12712915 (Version 2)
Quarter: 2016Q4

REPORT INFORMATION
  Report Type: Spontaneous
  Country: JP (occurrence: JP)
  Receive Date: 20160902
  Receipt Date: 20161031
  Transmission Date: 20170207
  Serious: Yes (Hospitalization, Other)
  Sender: FDA-Public Use
  Company Number: JP-ELI_LILLY_AND_COMPANY-JP201607004220

PATIENT
  Age: 53 Year
  Sex: Female

DRUGS (18)
  1. BIPERIDEN [Suspect]
     Active Substance: BIPERIDEN
     Dosage: 6 MG, UNK
  2. LEVODOPA/CARBIDOPA [Suspect]
     Active Substance: CARBIDOPA\LEVODOPA
     Dosage: 600 MG, UNK
     Dates: start: 201310
  3. CLONAZEPAM. [Concomitant]
     Active Substance: CLONAZEPAM
     Dosage: 1.5 MG, UNK
  4. ROPINIROLE. [Suspect]
     Active Substance: ROPINIROLE
     Dosage: 6 MG, UNK
  5. BIPERIDEN [Suspect]
     Active Substance: BIPERIDEN
     Dosage: 2 MG, UNK
     Dates: start: 201305, end: 201606
  6. RISPERIDONE. [Suspect]
     Active Substance: RISPERIDONE
     Dosage: 2 MG, UNK
  7. QUETIAPINE FUMARATE. [Suspect]
     Active Substance: QUETIAPINE FUMARATE
     Dosage: 75 MG, UNK
  8. ZYPREXA [Suspect]
     Active Substance: OLANZAPINE
     Dosage: UNK
     Dates: start: 201309, end: 201310
  9. LEVODOPA/CARBIDOPA [Suspect]
     Active Substance: CARBIDOPA\LEVODOPA
     Dosage: 100 MG, UNK
     Dates: start: 201309, end: 201310
  10. BIPERIDEN [Suspect]
     Active Substance: BIPERIDEN
     Dosage: 3 MG, UNK
     Route: 048
     Dates: start: 201306
  11. ROTIGOTINE [Suspect]
     Active Substance: ROTIGOTINE
     Dosage: UNK
     Dates: start: 201408
  12. ROPINIROLE. [Suspect]
     Active Substance: ROPINIROLE
     Dosage: 1 MG, UNK
  13. BROTIZOLAM [Concomitant]
     Active Substance: BROTIZOLAM
     Indication: DEMENTIA WITH LEWY BODIES
     Dosage: 0.25 MG, UNK
  14. ZYPREXA [Suspect]
     Active Substance: OLANZAPINE
     Dosage: UNK
     Route: 048
     Dates: start: 201309, end: 201310
  15. TIAPRIDE HYDROCHLORIDE [Suspect]
     Active Substance: TIAPRIDE HYDROCHLORIDE
  16. PEROSPIRONE HYDROCHLORIDE [Suspect]
     Active Substance: PEROSPIRONE HYDROCHLORIDE
  17. ZYPREXA [Suspect]
     Active Substance: OLANZAPINE
     Indication: PRODUCT USED FOR UNKNOWN INDICATION
     Dosage: UNK
     Route: 048
     Dates: start: 201305, end: 2013
  18. YOKUKANSAN [Concomitant]
     Active Substance: HERBALS

REACTIONS (3)
  - Tardive dyskinesia [Unknown]
  - Drug hypersensitivity [Unknown]
  - Dementia with Lewy bodies [Unknown]

NARRATIVE: CASE EVENT DATE: 2014
